FAERS Safety Report 4887647-3 (Version None)
Quarter: 2006Q1

REPORT INFORMATION
  Report Type: 
  Country: None (occurrence: None)
  Receive Date: 20060123
  Receipt Date: 20051227
  Transmission Date: 20060701
  Serious: Yes (Other)
  Sender: FDA-Public Use
  Company Number: KR-AVENTIS-200610126EU

PATIENT
  Age: 53 Year
  Sex: Male

DRUGS (6)
  1. ENOXAPARIN SODIUM [Suspect]
     Indication: ANGINA UNSTABLE
     Route: 058
  2. ASPIRIN [Concomitant]
     Indication: ANGINA UNSTABLE
     Dosage: DOSE: 300MG THEN 100MG
     Route: 048
  3. NITROGLYCERIN [Concomitant]
     Indication: ANGINA UNSTABLE
     Route: 060
  4. NITROGLYCERIN [Concomitant]
     Route: 042
  5. CLOPIDOGREL [Concomitant]
     Indication: ANGINA UNSTABLE
     Dosage: DOSE: 300MG THEN 75MG
     Route: 048
  6. UNFRACTIONATED HEPARIN [Concomitant]
     Indication: ANGINA UNSTABLE
     Route: 042

REACTIONS (6)
  - ABDOMINAL DISCOMFORT [None]
  - DYSKINESIA [None]
  - DYSURIA [None]
  - EXTRADURAL HAEMATOMA [None]
  - HYPOAESTHESIA [None]
  - PARAESTHESIA [None]
